FAERS Safety Report 5254495-4 (Version None)
Quarter: 2007Q1

REPORT INFORMATION
  Report Type: 
  Country: None (occurrence: None)
  Receive Date: 20070302
  Receipt Date: 20070220
  Transmission Date: 20070707
  Serious: Yes (Other)
  Sender: FDA-Public Use
  Company Number: FR-PFIZER INC-2007001140

PATIENT
  Sex: Female
  Weight: 90 kg

DRUGS (10)
  1. LYRICA [Suspect]
     Indication: NEURALGIA
     Route: 048
     Dates: start: 20061210, end: 20061212
  2. LYRICA [Suspect]
     Indication: NEUROPATHY
  3. HYPERIUM [Concomitant]
     Route: 048
  4. ELISOR [Concomitant]
     Route: 048
  5. NEXIUM [Concomitant]
     Route: 048
  6. NOCERTONE [Concomitant]
     Route: 048
  7. NASONEX [Concomitant]
     Route: 045
  8. METFORMIN HCL [Concomitant]
     Route: 048
  9. ATACAND [Concomitant]
     Route: 048
  10. AMLODIPINE [Concomitant]
     Route: 048

REACTIONS (4)
  - CONSTIPATION [None]
  - DIPLOPIA [None]
  - DISORIENTATION [None]
  - GENERALISED OEDEMA [None]
